FAERS Safety Report 8824060 (Version 3)
Quarter: 2012Q4

REPORT INFORMATION
  Report Type: 
  Country: JP (occurrence: JP)
  Receive Date: 20121003
  Receipt Date: 20121104
  Transmission Date: 20130627
  Serious: Yes (Other)
  Sender: FDA-Public Use
  Company Number: JP-AMGEN-JPNSP2012062199

PATIENT
  Age: 86 Year
  Sex: Female
  Weight: 39 kg

DRUGS (7)
  1. RANMARK [Suspect]
     Indication: METASTASES TO BONE
     Dosage: UNK
     Route: 058
     Dates: start: 20120724, end: 20120724
  2. TRAMAL [Concomitant]
     Dosage: UNK
     Route: 065
  3. NOVAMIN [Concomitant]
     Dosage: UNK
     Route: 065
  4. MAGMITT [Concomitant]
     Dosage: UNK
     Route: 065
  5. SENNOSIDE [Concomitant]
     Dosage: UNK
     Route: 065
  6. GASTER [Concomitant]
     Dosage: UNK
     Route: 065
  7. CALONAL [Concomitant]
     Dosage: UNK
     Route: 065

REACTIONS (1)
  - Hypocalcaemia [Not Recovered/Not Resolved]
